FAERS Safety Report 21849096 (Version 1)
Quarter: 2023Q1

REPORT INFORMATION
  Report Type: Spontaneous
  Country: US (occurrence: None)
  Receive Date: 20230111
  Receipt Date: 20230111
  Transmission Date: 20230417
  Serious: Yes (Life-Threatening)
  Sender: FDA-Public Use
  Company Number: None

PATIENT
  Sex: Female

DRUGS (1)
  1. XTAMPZA ER [Suspect]
     Active Substance: OXYCODONE
     Dosage: FREQUENCY : TWICE A DAY;?
     Route: 048
     Dates: start: 20230110

REACTIONS (5)
  - Pyrexia [None]
  - Mouth swelling [None]
  - Dizziness [None]
  - Loss of consciousness [None]
  - Illness [None]
